FAERS Safety Report 6082789-1 (Version None)
Quarter: 2009Q1

REPORT INFORMATION
  Report Type: 
  Country: None (occurrence: None)
  Receive Date: 20090218
  Receipt Date: 20090210
  Transmission Date: 20090719
  Serious: Yes (Death, Other)
  Sender: FDA-Public Use
  Company Number: US-BAXTER-2008BH013255

PATIENT
  Age: 40 Year
  Sex: Male

DRUGS (3)
  1. HEPARIN SODIUM INJECTION [Suspect]
     Indication: HAEMODIALYSIS
     Route: 010
     Dates: start: 20080125, end: 20080128
  2. ANTIBIOTICS [Concomitant]
     Indication: DRUG USE FOR UNKNOWN INDICATION
     Route: 065
  3. NOVEL ERYTHROPOIESIS STIMULATING PROTEIN [Concomitant]
     Indication: DRUG USE FOR UNKNOWN INDICATION
     Route: 065

REACTIONS (14)
  - ASTHENIA [None]
  - BEDRIDDEN [None]
  - CARDIO-RESPIRATORY ARREST [None]
  - CHEST PAIN [None]
  - CHILLS [None]
  - COMA [None]
  - DIABETES MELLITUS [None]
  - DYSPNOEA [None]
  - FALL [None]
  - FATIGUE [None]
  - INTRACARDIAC THROMBUS [None]
  - NAUSEA [None]
  - RENAL FAILURE CHRONIC [None]
  - WEIGHT INCREASED [None]
